FAERS Safety Report 4422342-6 (Version None)
Quarter: 2004Q3

REPORT INFORMATION
  Report Type: 
  Country: None (occurrence: None)
  Receive Date: 20040810
  Receipt Date: 20040804
  Transmission Date: 20050211
  Serious: Yes (Hospitalization)
  Sender: FDA-Public Use
  Company Number: 200412459EU

PATIENT
  Age: 51 Year
  Sex: Female

DRUGS (1)
  1. CLAFORAN [Suspect]
     Indication: BRAIN ABSCESS
     Route: 042
     Dates: start: 20040617, end: 20040713

REACTIONS (1)
  - PANCYTOPENIA [None]
